FAERS Safety Report 25667341 (Version 1)
Quarter: 2025Q3

REPORT INFORMATION
  Report Type: Spontaneous
  Country: CA (occurrence: CA)
  Receive Date: 20250811
  Receipt Date: 20250811
  Transmission Date: 20251021
  Serious: Yes (Hospitalization)
  Sender: NOVARTIS
  Company Number: CA-002147023-NVSC2025CA123222

PATIENT
  Age: 47 Year
  Sex: Female

DRUGS (2)
  1. BASILIXIMAB [Suspect]
     Active Substance: BASILIXIMAB
     Indication: Immunosuppressant drug therapy
     Route: 065
  2. TACROLIMUS [Suspect]
     Active Substance: TACROLIMUS
     Indication: Immunosuppressant drug therapy
     Route: 065

REACTIONS (2)
  - Ear neoplasm malignant [Recovered/Resolved]
  - Squamous cell carcinoma [Recovered/Resolved]
